FAERS Safety Report 9521818 (Version 1)
Quarter: 2013Q3

REPORT INFORMATION
  Report Type: Report from Study
  Country: US (occurrence: US)
  Receive Date: 20130913
  Receipt Date: 20130913
  Transmission Date: 20140515
  Serious: Yes (Other)
  Sender: FDA-Public Use
  Company Number: PHHO2013US011719

PATIENT
  Age: 77 Year
  Sex: Male
  Weight: 75 kg

DRUGS (1)
  1. ZOLEDRONATE [Suspect]
     Indication: PROSTATE CANCER
     Dosage: 4 MG, UNK
     Route: 042
     Dates: start: 20100622, end: 20120109

REACTIONS (1)
  - Osteonecrosis of jaw [Recovering/Resolving]
